FAERS Safety Report 7006668-8 (Version None)
Quarter: 2010Q3

REPORT INFORMATION
  Report Type: 
  Country: None (occurrence: None)
  Receive Date: 20100913
  Receipt Date: 20100906
  Transmission Date: 20110219
  Serious: Yes (Other)
  Sender: FDA-Public Use
  Company Number: 2010SP047603

PATIENT
  Age: 23 Year
  Sex: Female

DRUGS (1)
  1. MARVELON (DESOGESTREL/ETHINYLESTRADIOL/00570801/) [Suspect]
     Indication: CONTRACEPTION

REACTIONS (1)
  - FOCAL NODULAR HYPERPLASIA [None]
